FAERS Safety Report 5517709-9 (Version None)
Quarter: 2007Q4

REPORT INFORMATION
  Report Type: 
  Country: None (occurrence: None)
  Receive Date: 20071113
  Receipt Date: 20071106
  Transmission Date: 20080405
  Serious: Yes (Death, Hospitalization)
  Sender: FDA-Public Use
  Company Number: 2007SP003766

PATIENT
  Age: 71 Year
  Sex: Female

DRUGS (2)
  1. BROVANA [Suspect]
     Dosage: 15 UG/2ML; BID; INHALATION
     Route: 055
     Dates: start: 20070901
  2. ANALGESICS [Concomitant]

REACTIONS (1)
  - DYSPNOEA [None]
